FAERS Safety Report 5010924-2 (Version None)
Quarter: 2006Q2

REPORT INFORMATION
  Report Type: 
  Country: None (occurrence: None)
  Receive Date: 20060525
  Receipt Date: 20060517
  Transmission Date: 20061013
  Serious: Yes (Hospitalization)
  Sender: FDA-Public Use
  Company Number: 2006CG00894

PATIENT
  Age: 42 Year
  Sex: Female

DRUGS (4)
  1. NEXIUM [Suspect]
     Route: 048
  2. PROGRAF [Interacting]
     Route: 048
     Dates: start: 20050715
  3. CELLCEPT [Concomitant]
     Dates: start: 20050715, end: 20051001
  4. SOLUPRED [Concomitant]
     Dates: start: 20050715

REACTIONS (10)
  - ABDOMINAL PAIN [None]
  - DRUG INTERACTION [None]
  - DRY MOUTH [None]
  - HYPERHIDROSIS [None]
  - MICTURITION DISORDER [None]
  - MIGRAINE [None]
  - OEDEMA [None]
  - OVERDOSE [None]
  - TREMOR [None]
  - URINARY RETENTION [None]
